FAERS Safety Report 5312052-5 (Version None)
Quarter: 2007Q2

REPORT INFORMATION
  Report Type: 
  Country: None (occurrence: None)
  Receive Date: 20070430
  Receipt Date: 20060825
  Transmission Date: 20071010
  Serious: No
  Sender: FDA-Public Use
  Company Number: 2006UW16906

PATIENT
  Age: 53 Year
  Sex: Female
  Weight: 67.6 kg

DRUGS (3)
  1. NEXIUM [Suspect]
     Indication: DYSPEPSIA
     Route: 048
     Dates: start: 20040101
  2. NEXIUM [Suspect]
     Route: 048
     Dates: start: 20060101
  3. TRICOR [Concomitant]

REACTIONS (2)
  - DRY MOUTH [None]
  - INCREASED UPPER AIRWAY SECRETION [None]
